FAERS Safety Report 16225222 (Version 1)
Quarter: 2019Q2

REPORT INFORMATION
  Report Type: Spontaneous
  Country: PL (occurrence: PL)
  Receive Date: 20190422
  Receipt Date: 20190422
  Transmission Date: 20190711
  Serious: Yes (Hospitalization, Other)
  Sender: FDA-Public Use
  Company Number: PL-PFIZER INC-2019163265

PATIENT
  Age: 70 Year
  Sex: Male

DRUGS (51)
  1. LINEZOLID. [Suspect]
     Active Substance: LINEZOLID
     Indication: KLEBSIELLA SEPSIS
  2. METOCLOPRAMID [Concomitant]
     Active Substance: METOCLOPRAMIDE
     Indication: ENTEROCOCCAL SEPSIS
  3. VITALIPID N ADULT [Concomitant]
     Active Substance: ERGOCALCIFEROL\PHYTONADIONE\RETINOL\TOCOPHEROL
     Indication: ENTEROCOCCAL SEPSIS
     Dosage: 1 AMPOULE
     Route: 042
     Dates: start: 20140731, end: 20140824
  4. VITAMIN B1 [Concomitant]
     Active Substance: THIAMINE HYDROCHLORIDE
     Indication: ENTEROCOCCAL SEPSIS
  5. GLYCOPHOS [Concomitant]
     Active Substance: SODIUM GLYCEROPHOSPHATE ANHYDROUS
     Indication: KLEBSIELLA SEPSIS
  6. SOLUVIT [Concomitant]
     Active Substance: VITAMINS
     Indication: STAPHYLOCOCCAL SEPSIS
     Dosage: 1 AMPOULE
     Route: 042
     Dates: start: 20140731, end: 20140824
  7. SOLUVIT [Concomitant]
     Active Substance: VITAMINS
     Indication: KLEBSIELLA SEPSIS
  8. KCL [Concomitant]
     Active Substance: POTASSIUM CHLORIDE
     Indication: ENTEROCOCCAL SEPSIS
     Dosage: DOSAGE DEPENDING ON BLOOD LEVELS
     Route: 042
     Dates: start: 20140731
  9. KCL [Concomitant]
     Active Substance: POTASSIUM CHLORIDE
     Indication: STAPHYLOCOCCAL SEPSIS
  10. FUROSEMID [Concomitant]
     Active Substance: FUROSEMIDE
     Indication: ENTEROCOCCAL SEPSIS
     Dosage: 20 MG, UNK
     Route: 042
     Dates: start: 20140731, end: 20140802
  11. FUROSEMID [Concomitant]
     Active Substance: FUROSEMIDE
     Indication: STAPHYLOCOCCAL SEPSIS
  12. MORPHINE [Concomitant]
     Active Substance: MORPHINE
     Indication: KLEBSIELLA SEPSIS
     Dosage: ONGOING THERAPY
     Route: 058
     Dates: start: 20140731
  13. MORPHINE [Concomitant]
     Active Substance: MORPHINE
     Indication: ENTEROCOCCAL SEPSIS
  14. IMIPENEM [Concomitant]
     Active Substance: IMIPENEM
     Indication: ENTEROCOCCAL SEPSIS
  15. SOLUVIT [Concomitant]
     Active Substance: VITAMINS
     Indication: ENTEROCOCCAL SEPSIS
  16. CALCIUM [Concomitant]
     Active Substance: CALCIUM
     Indication: KLEBSIELLA SEPSIS
  17. CALCIUM [Concomitant]
     Active Substance: CALCIUM
     Indication: STAPHYLOCOCCAL SEPSIS
  18. KCL [Concomitant]
     Active Substance: POTASSIUM CHLORIDE
     Indication: KLEBSIELLA SEPSIS
  19. METOCLOPRAMID [Concomitant]
     Active Substance: METOCLOPRAMIDE
     Indication: STAPHYLOCOCCAL SEPSIS
  20. PROTIFAR [Concomitant]
     Active Substance: DIETARY SUPPLEMENT
     Indication: KLEBSIELLA SEPSIS
  21. MORPHINE [Concomitant]
     Active Substance: MORPHINE
     Indication: STAPHYLOCOCCAL SEPSIS
  22. CONTROLOC [Concomitant]
     Active Substance: PANTOPRAZOLE SODIUM
     Indication: KLEBSIELLA SEPSIS
  23. LINEZOLID. [Suspect]
     Active Substance: LINEZOLID
     Indication: ENTEROCOCCAL SEPSIS
  24. VITALIPID N ADULT [Concomitant]
     Active Substance: ERGOCALCIFEROL\PHYTONADIONE\RETINOL\TOCOPHEROL
     Indication: STAPHYLOCOCCAL SEPSIS
  25. KABIVEN [Concomitant]
     Active Substance: AMINO ACIDS\ANHYDROUS DEXTROSE\CALCIUM CHLORIDE\MAGNESIUM SULFATE HEPTAHYDRATE\POTASSIUM CHLORIDE\SODIUM ACETATE\SODIUM GLYCEROPHOSPHATE ANHYDROUS\SOYBEAN OIL
     Indication: STAPHYLOCOCCAL SEPSIS
     Dosage: DOSE UNKNOWN
     Route: 042
     Dates: start: 20140731, end: 20140824
  26. KABIVEN [Concomitant]
     Active Substance: AMINO ACIDS\ANHYDROUS DEXTROSE\CALCIUM CHLORIDE\MAGNESIUM SULFATE HEPTAHYDRATE\POTASSIUM CHLORIDE\SODIUM ACETATE\SODIUM GLYCEROPHOSPHATE ANHYDROUS\SOYBEAN OIL
     Indication: KLEBSIELLA SEPSIS
  27. ZOFRAN [Concomitant]
     Active Substance: ONDANSETRON HYDROCHLORIDE
     Indication: ENTEROCOCCAL SEPSIS
     Dosage: ONGOING THERAPY
     Route: 042
     Dates: start: 20140731
  28. ZOFRAN [Concomitant]
     Active Substance: ONDANSETRON HYDROCHLORIDE
     Indication: STAPHYLOCOCCAL SEPSIS
  29. ZOFRAN [Concomitant]
     Active Substance: ONDANSETRON HYDROCHLORIDE
     Indication: KLEBSIELLA SEPSIS
  30. GLYCOPHOS [Concomitant]
     Active Substance: SODIUM GLYCEROPHOSPHATE ANHYDROUS
     Indication: STAPHYLOCOCCAL SEPSIS
  31. MATRIFEN [Concomitant]
     Active Substance: FENTANYL
     Indication: STAPHYLOCOCCAL SEPSIS
     Dosage: 50 UG (H),  ONGOING THERAPY
     Route: 062
     Dates: start: 20140731
  32. MATRIFEN [Concomitant]
     Active Substance: FENTANYL
     Indication: ENTEROCOCCAL SEPSIS
  33. KABIVEN [Concomitant]
     Active Substance: AMINO ACIDS\ANHYDROUS DEXTROSE\CALCIUM CHLORIDE\MAGNESIUM SULFATE HEPTAHYDRATE\POTASSIUM CHLORIDE\SODIUM ACETATE\SODIUM GLYCEROPHOSPHATE ANHYDROUS\SOYBEAN OIL
     Indication: ENTEROCOCCAL SEPSIS
  34. BUSCOLYSIN [Concomitant]
     Active Substance: BUTYLSCOPOLAMINE
     Indication: STAPHYLOCOCCAL SEPSIS
  35. VITAMIN B1 [Concomitant]
     Active Substance: THIAMINE HYDROCHLORIDE
     Indication: STAPHYLOCOCCAL SEPSIS
  36. CONTROLOC [Concomitant]
     Active Substance: PANTOPRAZOLE SODIUM
     Indication: STAPHYLOCOCCAL SEPSIS
     Dosage: ONGOING THERAPY
     Route: 042
     Dates: start: 20140731
  37. CALCIUM [Concomitant]
     Active Substance: CALCIUM
     Indication: ENTEROCOCCAL SEPSIS
     Dosage: DOSE: 1 AMPOULE
     Route: 042
     Dates: start: 20140731, end: 20140827
  38. MATRIFEN [Concomitant]
     Active Substance: FENTANYL
     Indication: KLEBSIELLA SEPSIS
  39. PROTIFAR [Concomitant]
     Active Substance: DIETARY SUPPLEMENT
     Indication: ENTEROCOCCAL SEPSIS
     Dosage: 3 TIMES 1 MEASURE; ONGOING THERAPY
     Route: 048
     Dates: start: 20140731
  40. PROTIFAR [Concomitant]
     Active Substance: DIETARY SUPPLEMENT
     Indication: STAPHYLOCOCCAL SEPSIS
  41. IMIPENEM [Concomitant]
     Active Substance: IMIPENEM
     Indication: STAPHYLOCOCCAL SEPSIS
     Dosage: 500 MG, 4X/DAY
     Route: 042
     Dates: start: 20140731, end: 20140808
  42. IMIPENEM [Concomitant]
     Active Substance: IMIPENEM
     Indication: KLEBSIELLA SEPSIS
  43. BUSCOLYSIN [Concomitant]
     Active Substance: BUTYLSCOPOLAMINE
     Indication: ENTEROCOCCAL SEPSIS
  44. LINEZOLID. [Suspect]
     Active Substance: LINEZOLID
     Indication: STAPHYLOCOCCAL SEPSIS
     Dosage: 600 MG, 2X/DAY
     Route: 042
     Dates: start: 20140731, end: 20140810
  45. FUROSEMID [Concomitant]
     Active Substance: FUROSEMIDE
     Indication: KLEBSIELLA SEPSIS
  46. VITALIPID N ADULT [Concomitant]
     Active Substance: ERGOCALCIFEROL\PHYTONADIONE\RETINOL\TOCOPHEROL
     Indication: KLEBSIELLA SEPSIS
  47. BUSCOLYSIN [Concomitant]
     Active Substance: BUTYLSCOPOLAMINE
     Indication: KLEBSIELLA SEPSIS
     Dosage: 2 TIMES 1 AMPOULE A DAY
     Route: 042
     Dates: start: 20140731, end: 20140820
  48. VITAMIN B1 [Concomitant]
     Active Substance: THIAMINE HYDROCHLORIDE
     Indication: KLEBSIELLA SEPSIS
     Dosage: 100 MG, UNK
     Route: 065
     Dates: start: 20140731, end: 20140824
  49. METOCLOPRAMID [Concomitant]
     Active Substance: METOCLOPRAMIDE
     Indication: KLEBSIELLA SEPSIS
     Dosage: DOSAGE 2 TIMES 1 AMPOULE A DAY
     Route: 042
     Dates: start: 20140731, end: 20140806
  50. GLYCOPHOS [Concomitant]
     Active Substance: SODIUM GLYCEROPHOSPHATE ANHYDROUS
     Indication: ENTEROCOCCAL SEPSIS
     Dosage: 1/2 AMPOULE
     Route: 065
     Dates: start: 20140731, end: 20140824
  51. CONTROLOC [Concomitant]
     Active Substance: PANTOPRAZOLE SODIUM
     Indication: ENTEROCOCCAL SEPSIS

REACTIONS (1)
  - Polyuria [Recovered/Resolved]

NARRATIVE: CASE EVENT DATE: 20140801
